FAERS Safety Report 20408718 (Version 1)
Quarter: 2022Q1

REPORT INFORMATION
  Report Type: Spontaneous
  Country: US (occurrence: US)
  Receive Date: 20220201
  Receipt Date: 20220201
  Transmission Date: 20220423
  Serious: Yes (Death, Other)
  Sender: FDA-Public Use
  Company Number: US-AMGEN-USASP2022014769

PATIENT

DRUGS (4)
  1. BEVACIZUMAB [Suspect]
     Active Substance: BEVACIZUMAB
     Indication: Glioma
     Dosage: UNK
     Route: 065
  2. INDOXIMOD [Concomitant]
     Active Substance: INDOXIMOD
     Dosage: 1200 MILLIGRAM, BID
  3. INDOXIMOD [Concomitant]
     Active Substance: INDOXIMOD
     Dosage: 600 MILLIGRAM, BID
  4. TEMOZOLOMIDE [Concomitant]
     Active Substance: TEMOZOLOMIDE
     Dosage: 150 MILLIGRAM/ METER SQAURE

REACTIONS (1)
  - Death [Fatal]
